FAERS Safety Report 5505066-3 (Version None)
Quarter: 2007Q4

REPORT INFORMATION
  Report Type: 
  Country: None (occurrence: None)
  Receive Date: 20071102
  Receipt Date: 20071025
  Transmission Date: 20080405
  Serious: Yes (Death)
  Sender: FDA-Public Use
  Company Number: US-ROCHE-527772

PATIENT
  Sex: Female

DRUGS (1)
  1. BONIVA [Suspect]
     Indication: DRUG USE FOR UNKNOWN INDICATION
     Dosage: DOSE: PATIENT TOOK 1.
     Route: 065
     Dates: start: 20060101, end: 20060101

REACTIONS (1)
  - EROSIVE OESOPHAGITIS [None]
